FAERS Safety Report 14379424 (Version 3)
Quarter: 2018Q1

REPORT INFORMATION
  Report Type: Report from Study
  Country: None (occurrence: NL)
  Receive Date: 20180112
  Receipt Date: 20180201
  Transmission Date: 20180509
  Serious: Yes (Hospitalization)
  Sender: FDA-Public Use
  Company Number: NL-ABBVIE-18K-114-2219767-00

PATIENT
  Sex: Male
  Weight: 78.2 kg

DRUGS (1)
  1. DUODOPA [Suspect]
     Active Substance: CARBIDOPA\LEVODOPA
     Indication: PARKINSON^S DISEASE
     Dosage: MORNING DOSE: 5.3 CONTINUOUS DOSE:3.3EXTRA DOSE: 0.7
     Route: 050
     Dates: start: 20090727

REACTIONS (4)
  - Decubitus ulcer [Not Recovered/Not Resolved]
  - General physical health deterioration [Not Recovered/Not Resolved]
  - Anal abscess [Unknown]
  - Pilonidal cyst [Not Recovered/Not Resolved]
